FAERS Safety Report 4586765-7 (Version None)
Quarter: 2005Q1

REPORT INFORMATION
  Report Type: 
  Country: None (occurrence: None)
  Receive Date: 20050218
  Receipt Date: 20050214
  Transmission Date: 20050727
  Serious: Yes (Other)
  Sender: FDA-Public Use
  Company Number: CA-BRISTOL-MYERS SQUIBB COMPANY-12865341

PATIENT
  Age: 76 Year
  Sex: Female

DRUGS (4)
  1. TEQUIN [Suspect]
     Indication: BRONCHITIS
     Route: 048
     Dates: start: 20050108, end: 20050108
  2. ACEBUTOLOL [Concomitant]
     Route: 048
  3. ALTACE [Concomitant]
     Route: 048
  4. FOSAMAX [Concomitant]
     Route: 048

REACTIONS (1)
  - ATRIAL FIBRILLATION [None]
